FAERS Safety Report 5794605-3 (Version None)
Quarter: 2008Q2

REPORT INFORMATION
  Report Type: 
  Country: None (occurrence: None)
  Receive Date: 20080627
  Receipt Date: 20080627
  Transmission Date: 20081010
  Serious: Yes (Hospitalization)
  Sender: FDA-Public Use
  Company Number: None

PATIENT
  Sex: Male

DRUGS (12)
  1. ERBITUX [Suspect]
     Indication: COLON CANCER METASTATIC
     Dosage: INFUSION
     Dates: start: 20071029
  2. LASIX [Concomitant]
  3. COREG [Concomitant]
  4. VASOTEC [Concomitant]
  5. DIGITEK [Concomitant]
  6. COUMADIN [Concomitant]
  7. ALDACTONE [Concomitant]
  8. ZOCOR [Concomitant]
  9. ALLOPURINOL [Concomitant]
  10. COLCHICINE [Concomitant]
  11. LEUCOVORIN CALCIUM [Concomitant]
  12. FLUOROURACIL [Concomitant]

REACTIONS (1)
  - SYNCOPE [None]
